FAERS Safety Report 5298718-4 (Version None)
Quarter: 2007Q1

REPORT INFORMATION
  Report Type: 
  Country: None (occurrence: None)
  Receive Date: 20070201
  Receipt Date: 20061029
  Transmission Date: 20070707
  Serious: No
  Sender: FDA-Public Use
  Company Number: 2006PV024100

PATIENT
  Age: 64 Year
  Sex: Male
  Weight: 134.2647 kg

DRUGS (7)
  1. BYETTA [Suspect]
     Indication: DIABETES MELLITUS NON-INSULIN-DEPENDENT
     Dosage: 5 MCG; BID; SC
     Route: 058
     Dates: start: 20061001
  2. AVANDIA [Concomitant]
  3. METFORMIN HCL [Concomitant]
  4. TYLENOL W/ CODEINE NO. 3 [Concomitant]
  5. LASIX [Concomitant]
  6. ZOLOFT [Concomitant]
  7. LUMIGAN [Concomitant]

REACTIONS (1)
  - BLOOD GLUCOSE INCREASED [None]
